FAERS Safety Report 4479139-0 (Version None)
Quarter: 2004Q4

REPORT INFORMATION
  Report Type: 
  Country: None (occurrence: None)
  Receive Date: 20040923
  Receipt Date: 20040603
  Transmission Date: 20050328
  Serious: No
  Sender: FDA-Public Use
  Company Number: 206962

PATIENT
  Age: 80 Year
  Sex: Male
  Weight: 113.8 kg

DRUGS (4)
  1. AVASTIN [Suspect]
     Indication: COLORECTAL CANCER METASTATIC
     Dosage: 570 MG, SINGLE, INTRAVENOUS
     Route: 042
     Dates: start: 20040527, end: 20040527
  2. FLUOROURACIL [Suspect]
  3. LEUCOVORIN (LEUCOVORIN CALCIUM) [Concomitant]
  4. CPT-11 (IRINOTECAN HYDROCHLORIDE) [Concomitant]

REACTIONS (2)
  - ERYTHEMA [None]
  - URTICARIA [None]
